FAERS Safety Report 5661481-9 (Version None)
Quarter: 2008Q1

REPORT INFORMATION
  Report Type: 
  Country: None (occurrence: None)
  Receive Date: 20080312
  Receipt Date: 20080220
  Transmission Date: 20080703
  Serious: No
  Sender: FDA-Public Use
  Company Number: US-JNJFOC-20080204897

PATIENT
  Age: 69 Year
  Sex: Female
  Weight: 79.38 kg

DRUGS (6)
  1. INVEGA [Suspect]
     Route: 048
  2. INVEGA [Suspect]
     Route: 048
  3. INVEGA [Suspect]
     Indication: SCHIZOPHRENIA, PARANOID TYPE
     Route: 048
  4. LEXAPRO [Concomitant]
     Route: 048
  5. LEXAPRO [Concomitant]
     Indication: SCHIZOPHRENIA, PARANOID TYPE
     Route: 048
  6. PROZAC [Concomitant]
     Indication: SCHIZOPHRENIA, PARANOID TYPE
     Route: 048

REACTIONS (6)
  - AMNESIA [None]
  - BALANCE DISORDER [None]
  - DYSKINESIA [None]
  - GAIT DISTURBANCE [None]
  - IMMOBILE [None]
  - TREMOR [None]
